FAERS Safety Report 14974573 (Version 1)
Quarter: 2018Q2

REPORT INFORMATION
  Report Type: Spontaneous
  Country: BR (occurrence: BR)
  Receive Date: 20180605
  Receipt Date: 20180605
  Transmission Date: 20180711
  Serious: Yes (Other)
  Sender: FDA-Public Use
  Company Number: BR-ALLERGAN-1828538US

PATIENT
  Age: 62 Year
  Sex: Male
  Weight: 86 kg

DRUGS (6)
  1. ATROPINA 1% [Suspect]
     Active Substance: ATROPINE
     Indication: PAIN
     Dosage: 4 GTT, UNK
     Route: 047
     Dates: start: 20180527, end: 20180527
  2. RIVOTRIL [Concomitant]
     Active Substance: CLONAZEPAM
     Indication: PRODUCT USED FOR UNKNOWN INDICATION
     Dosage: 2 MG, UNK
  3. ENALAPRIL [Concomitant]
     Active Substance: ENALAPRIL
     Indication: PRODUCT USED FOR UNKNOWN INDICATION
  4. ATROPINA 1% [Suspect]
     Active Substance: ATROPINE
     Dosage: UNK
     Dates: start: 200904
  5. GLIFAGE [Concomitant]
     Active Substance: METFORMIN HYDROCHLORIDE
     Indication: PRODUCT USED FOR UNKNOWN INDICATION
     Dosage: 500 MG, UNK
  6. OMEPRAZOLE. [Concomitant]
     Active Substance: OMEPRAZOLE
     Indication: PRODUCT USED FOR UNKNOWN INDICATION
     Dosage: 20 MG, UNK

REACTIONS (6)
  - Eye pain [Not Recovered/Not Resolved]
  - Mydriasis [Not Recovered/Not Resolved]
  - Photophobia [Not Recovered/Not Resolved]
  - Corneal oedema [Not Recovered/Not Resolved]
  - Retinal detachment [Not Recovered/Not Resolved]
  - Off label use [Unknown]

NARRATIVE: CASE EVENT DATE: 201003
